FAERS Safety Report 5628711-0 (Version None)
Quarter: 2008Q1

REPORT INFORMATION
  Report Type: 
  Country: None (occurrence: None)
  Receive Date: 20080215
  Receipt Date: 20080208
  Transmission Date: 20080703
  Serious: Yes (Other)
  Sender: FDA-Public Use
  Company Number: JP-GENENTECH-255933

PATIENT
  Age: 27 Year
  Sex: Female

DRUGS (3)
  1. AVASTIN [Suspect]
     Indication: CHOROIDAL NEOVASCULARISATION
     Dosage: 1 MG, UNKNOWN
     Route: 031
  2. POVIDONE IODINE [Concomitant]
     Indication: DRUG USE FOR UNKNOWN INDICATION
  3. TOPICAL ANESTHESIA (UNK INGREDIENTS) [Concomitant]
     Indication: ANAESTHESIA

REACTIONS (1)
  - OLIGOMENORRHOEA [None]
